FAERS Safety Report 12268709 (Version 2)
Quarter: 2016Q2

REPORT INFORMATION
  Report Type: Report from Study
  Country: US (occurrence: US)
  Receive Date: 20160414
  Receipt Date: 20160419
  Transmission Date: 20160815
  Serious: No
  Sender: FDA-Public Use
  Company Number: PHEH2015US005807

PATIENT
  Age: 61 Year
  Sex: Female

DRUGS (1)
  1. SANDOSTATIN LAR DEPOT [Suspect]
     Active Substance: OCTREOTIDE ACETATE
     Indication: CARCINOID SYNDROME
     Dosage: 60 MG, EVERY 3 WEEKS
     Route: 030

REACTIONS (3)
  - Injection site pain [Unknown]
  - Injection site mass [Unknown]
  - Drug administration error [Unknown]

NARRATIVE: CASE EVENT DATE: 20150302
